FAERS Safety Report 5063324-3 (Version None)
Quarter: 2006Q3

REPORT INFORMATION
  Report Type: 
  Country: None (occurrence: None)
  Receive Date: 20060703
  Receipt Date: 20051122
  Transmission Date: 20061208
  Serious: No
  Sender: FDA-Public Use
  Company Number: 2005S1011354

PATIENT
  Age: 38 Year
  Sex: Male
  Weight: 102.5129 kg

DRUGS (5)
  1. CLOZAPINE [Suspect]
     Indication: SCHIZOPHRENIA
     Dosage: SEE IMAGE
     Route: 048
     Dates: start: 20030530
  2. ARIPIPRAZOLE [Concomitant]
  3. SETRALINE HCL [Concomitant]
  4. FENOFIBRATE [Concomitant]
  5. ATENOLOL [Concomitant]

REACTIONS (2)
  - GRANULOCYTOPENIA [None]
  - LEUKOPENIA [None]
